FAERS Safety Report 14953484 (Version 1)
Quarter: 2018Q2

REPORT INFORMATION
  Report Type: Spontaneous
  Country: CO (occurrence: CO)
  Receive Date: 20180530
  Receipt Date: 20180530
  Transmission Date: 20180711
  Serious: Yes (Hospitalization)
  Sender: FDA-Public Use
  Company Number: CO-BAYER-2018-099332

PATIENT
  Age: 22 Year
  Sex: Male
  Weight: 77 kg

DRUGS (2)
  1. ULTRAVIST? 300 [Suspect]
     Active Substance: IOPROMIDE
     Indication: COMPUTERISED TOMOGRAM
     Dosage: 80 ML, ONCE
     Route: 042
     Dates: start: 20180516, end: 20180516
  2. HARTMAN G-1 [Concomitant]
     Dosage: 500 ML, ONCE

REACTIONS (7)
  - Hypotonia [None]
  - Confusional state [None]
  - Clonic convulsion [None]
  - Somnolence [Not Recovered/Not Resolved]
  - Cyanosis [None]
  - Fall [None]
  - Pallor [None]

NARRATIVE: CASE EVENT DATE: 20180516
